FAERS Safety Report 22335832 (Version 1)
Quarter: 2023Q2

REPORT INFORMATION
  Report Type: Other
  Country: US (occurrence: None)
  Receive Date: 20230518
  Receipt Date: 20230518
  Transmission Date: 20230722
  Serious: Yes (Other)
  Sender: FDA-Public Use
  Company Number: US-ROCHE-3350957

PATIENT
  Sex: Male

DRUGS (2)
  1. MYCOPHENOLATE MOFETIL [Suspect]
     Active Substance: MYCOPHENOLATE MOFETIL
     Indication: Heart transplant
     Route: 048
  2. VALGANCICLOVIR HYDROCHLORIDE [Suspect]
     Active Substance: VALGANCICLOVIR HYDROCHLORIDE
     Indication: Heart transplant
     Route: 065

REACTIONS (1)
  - Deafness [Unknown]
